FAERS Safety Report 8614668-7 (Version None)
Quarter: 2012Q3

REPORT INFORMATION
  Report Type: 
  Country: None (occurrence: None)
  Receive Date: 20120823
  Receipt Date: 20120815
  Transmission Date: 20120928
  Serious: Yes (Other)
  Sender: FDA-Public Use
  Company Number: US-US-EMD SERONO, INC.-7155384

PATIENT
  Sex: Female

DRUGS (3)
  1. REBIF [Suspect]
     Indication: MULTIPLE SCLEROSIS
     Route: 058
     Dates: start: 20110210
  2. COUMADIN [Concomitant]
     Indication: PROPHYLAXIS
     Dates: start: 20120715
  3. CRESTOR [Concomitant]
     Indication: PRODUCT USED FOR UNKNOWN INDICATION

REACTIONS (6)
  - THYROID DISORDER [None]
  - HEPATIC ATROPHY [None]
  - INJECTION SITE PAIN [None]
  - DYSPHAGIA [None]
  - INJECTION SITE SWELLING [None]
  - ENDOMETRIAL ABLATION [None]
